FAERS Safety Report 11414546 (Version 2)
Quarter: 2015Q3

REPORT INFORMATION
  Report Type: Report from Study
  Country: US (occurrence: US)
  Receive Date: 20150825
  Receipt Date: 20150908
  Transmission Date: 20151125
  Serious: Yes (Other)
  Sender: FDA-Public Use
  Company Number: PHEH2015US015735

PATIENT
  Age: 28 Year
  Sex: Female
  Weight: 76.19 kg

DRUGS (10)
  1. GILENYA [Suspect]
     Active Substance: FINGOLIMOD HYDROCHLORIDE
     Indication: MULTIPLE SCLEROSIS
     Dosage: 0.5 MG, QD
     Route: 048
     Dates: start: 20110615, end: 20120608
  2. GILENYA [Suspect]
     Active Substance: FINGOLIMOD HYDROCHLORIDE
     Dosage: 0.5 MG, QD
     Route: 048
     Dates: start: 20130404
  3. ZYPREXA [Concomitant]
     Active Substance: OLANZAPINE
     Indication: PRODUCT USED FOR UNKNOWN INDICATION
     Route: 065
  4. TECFIDERA [Suspect]
     Active Substance: DIMETHYL FUMARATE
     Indication: MULTIPLE SCLEROSIS
     Dosage: UNK
     Route: 065
  5. BUSPIRONE [Concomitant]
     Active Substance: BUSPIRONE HYDROCHLORIDE
     Indication: PRODUCT USED FOR UNKNOWN INDICATION
     Route: 065
  6. LAMICTAL [Concomitant]
     Active Substance: LAMOTRIGINE
     Indication: PRODUCT USED FOR UNKNOWN INDICATION
     Route: 065
  7. ALBUTEROL. [Concomitant]
     Active Substance: ALBUTEROL
     Indication: PRODUCT USED FOR UNKNOWN INDICATION
     Route: 065
  8. VITAMIN B12 [Concomitant]
     Active Substance: CYANOCOBALAMIN
     Indication: PRODUCT USED FOR UNKNOWN INDICATION
     Route: 065
  9. ZOLOFT [Concomitant]
     Active Substance: SERTRALINE HYDROCHLORIDE
     Indication: PRODUCT USED FOR UNKNOWN INDICATION
     Route: 065
  10. DEPO-PROVERA [Concomitant]
     Active Substance: MEDROXYPROGESTERONE ACETATE
     Indication: PRODUCT USED FOR UNKNOWN INDICATION
     Route: 065

REACTIONS (37)
  - Dyspnoea [Unknown]
  - Memory impairment [Unknown]
  - Muscular weakness [Unknown]
  - Vertigo [Not Recovered/Not Resolved]
  - Vertigo [Unknown]
  - Uhthoff^s phenomenon [Unknown]
  - Migraine [Unknown]
  - Central nervous system lesion [Unknown]
  - Multiple sclerosis [Unknown]
  - Speech disorder [Unknown]
  - Lhermitte^s sign [Unknown]
  - Sensory disturbance [Unknown]
  - Ataxia [Unknown]
  - Asthma exercise induced [Unknown]
  - Malaise [Unknown]
  - Muscle spasms [Unknown]
  - Uterine haemorrhage [Unknown]
  - Abdominal pain upper [Recovered/Resolved]
  - Dysgraphia [Unknown]
  - Fatigue [Not Recovered/Not Resolved]
  - Paraesthesia [Unknown]
  - JC virus test positive [Unknown]
  - Bradycardia [Unknown]
  - Multiple sclerosis relapse [Not Recovered/Not Resolved]
  - Relapsing-remitting multiple sclerosis [Unknown]
  - Asthenia [Unknown]
  - Flushing [Unknown]
  - Diarrhoea [Recovered/Resolved]
  - Hypoaesthesia [Unknown]
  - Urinary hesitation [Unknown]
  - Asthenopia [Unknown]
  - Visual impairment [Unknown]
  - Thinking abnormal [Unknown]
  - Balance disorder [Unknown]
  - Limb discomfort [Unknown]
  - Fall [Unknown]
  - Diplopia [Not Recovered/Not Resolved]

NARRATIVE: CASE EVENT DATE: 20140824
